FAERS Safety Report 11439148 (Version 1)
Quarter: 2015Q3

REPORT INFORMATION
  Report Type: Spontaneous
  Country: US (occurrence: US)
  Receive Date: 20150901
  Receipt Date: 20150901
  Transmission Date: 20151125
  Serious: No
  Sender: FDA-Public Use
  Company Number: US-ROCHE-1110999

PATIENT
  Sex: Female

DRUGS (1)
  1. PEGASYS [Suspect]
     Active Substance: PEGINTERFERON ALFA-2A
     Indication: PRODUCT USED FOR UNKNOWN INDICATION
     Route: 065

REACTIONS (8)
  - Injection site swelling [Unknown]
  - Pain of skin [Unknown]
  - Decreased appetite [Unknown]
  - Rash [Unknown]
  - Injection site pruritus [Unknown]
  - Poor quality drug administered [Unknown]
  - Malaise [Unknown]
  - Chills [Unknown]
